FAERS Safety Report 9829378 (Version 2)
Quarter: 2014Q1

REPORT INFORMATION
  Report Type: Spontaneous
  Country: US (occurrence: US)
  Receive Date: 20140120
  Receipt Date: 20140120
  Transmission Date: 20141002
  Serious: Yes (Hospitalization)
  Sender: FDA-Public Use
  Company Number: US-BIOGENIDEC-173004

PATIENT
  Age: 45 Year
  Sex: Female
  Weight: 106 kg

DRUGS (6)
  1. AVONEX [Suspect]
     Indication: MULTIPLE SCLEROSIS
     Route: 030
     Dates: start: 1996, end: 2003
  2. AVONEX [Suspect]
     Indication: MULTIPLE SCLEROSIS
     Route: 030
     Dates: start: 2003
  3. METHYLPREDNISOLONE [Concomitant]
  4. RELAFEN [Concomitant]
  5. ULTRAM [Concomitant]
  6. TORADOL [Concomitant]

REACTIONS (15)
  - Fall [Recovered/Resolved]
  - Osteonecrosis [Recovered/Resolved]
  - Bone disorder [Recovered/Resolved]
  - Ankle fracture [Recovered/Resolved]
  - Procedural pain [Recovered/Resolved]
  - Oedema peripheral [Not Recovered/Not Resolved]
  - Hypertension [Not Recovered/Not Resolved]
  - Seasonal allergy [Recovered/Resolved]
  - Multiple sclerosis relapse [Recovered/Resolved]
  - Influenza like illness [Recovered/Resolved]
  - Flushing [Recovered/Resolved]
  - Asthenia [Recovered/Resolved]
  - Fatigue [Recovered/Resolved]
  - Arthritis [Unknown]
  - Muscular weakness [Recovered/Resolved]
